FAERS Safety Report 13627448 (Version 1)
Quarter: 2017Q2

REPORT INFORMATION
  Report Type: Report from Study
  Country: None (occurrence: DE)
  Receive Date: 20170608
  Receipt Date: 20170608
  Transmission Date: 20170830
  Serious: Yes (Hospitalization)
  Sender: FDA-Public Use
  Company Number: DE-ABBVIE-17K-062-1999735-00

PATIENT
  Age: 46 Year
  Sex: Female
  Weight: 90 kg

DRUGS (4)
  1. HUMIRA [Suspect]
     Active Substance: ADALIMUMAB
     Indication: RHEUMATOID ARTHRITIS
     Route: 058
     Dates: start: 20150720, end: 201612
  2. HUMIRA [Suspect]
     Active Substance: ADALIMUMAB
     Route: 058
     Dates: start: 201612
  3. L-THYROXIN [Concomitant]
     Active Substance: LEVOTHYROXINE SODIUM
     Indication: AUTOIMMUNE THYROIDITIS
  4. BECLOMETHASONE [Concomitant]
     Active Substance: BECLOMETHASONE
     Indication: ASTHMA

REACTIONS (3)
  - Influenza [Recovered/Resolved]
  - Pain [Unknown]
  - Enthesopathy [Unknown]

NARRATIVE: CASE EVENT DATE: 201612
